FAERS Safety Report 24281082 (Version 3)
Quarter: 2024Q3

REPORT INFORMATION
  Report Type: Spontaneous
  Country: KR (occurrence: KR)
  Receive Date: 20240904
  Receipt Date: 20240927
  Transmission Date: 20241016
  Serious: Yes (Hospitalization)
  Sender: MYLAN
  Company Number: KR-MYLANLABS-2024M1062273

PATIENT
  Age: 47 Year
  Sex: Male

DRUGS (8)
  1. CLOZARIL [Suspect]
     Active Substance: CLOZAPINE
     Indication: Schizophrenia
     Dosage: UNK
     Route: 065
  2. CLOZARIL [Suspect]
     Active Substance: CLOZAPINE
     Dosage: 200 MILLIGRAM, QD (100 MILLIGRAM AM (MORNING) AND 100 MILLIGRAM HS (AT NIGHT)
     Route: 065
     Dates: start: 20230904
  3. SAMSUNG TAMSULOSIN SR [Concomitant]
     Dosage: 0.4 MILLIGRAM, PM
     Route: 065
  4. Fina [Concomitant]
     Dosage: 5 MILLIGRAM, PM
     Route: 065
  5. VALPROATE SODIUM [Concomitant]
     Active Substance: VALPROATE SODIUM
     Dosage: 300 MILLIGRAM, BID (AT MORNING AND HS (NIGHT))
     Route: 065
  6. SLIVAN [Concomitant]
     Dosage: 1 MILLIGRAM, BID (AT MORNING AND HS (NIGHT))
     Route: 065
  7. AGIO [Concomitant]
     Dosage: UNK, BID
     Route: 065
  8. SINIL [Concomitant]
     Dosage: UNK (MORNING, NIGHT OR SOMETIMES MORNING)
     Route: 065

REACTIONS (3)
  - Schizophrenia [Unknown]
  - Neutrophil count decreased [Recovered/Resolved]
  - White blood cell count decreased [Recovered/Resolved]

NARRATIVE: CASE EVENT DATE: 20240702
